FAERS Safety Report 7610521-6 (Version None)
Quarter: 2011Q3

REPORT INFORMATION
  Report Type: 
  Country: None (occurrence: None)
  Receive Date: 20110715
  Receipt Date: 20110707
  Transmission Date: 20111222
  Serious: Yes (Hospitalization)
  Sender: FDA-Public Use
  Company Number: PL-ASTELLAS-2011EU004565

PATIENT
  Sex: Male

DRUGS (2)
  1. PIMECROLIMUS [Concomitant]
     Dosage: UNK
     Route: 065
     Dates: start: 20070101
  2. TACROLIMUS [Suspect]
     Indication: DERMATITIS ATOPIC
     Dosage: 0.03 %, UNKNOWN/D
     Route: 065
     Dates: start: 20070101

REACTIONS (1)
  - TONSILLECTOMY [None]
